FAERS Safety Report 21928703 (Version 2)
Quarter: 2023Q2

REPORT INFORMATION
  Report Type: Spontaneous
  Country: US (occurrence: US)
  Receive Date: 20230130
  Receipt Date: 20230412
  Transmission Date: 20230722
  Serious: Yes (Other)
  Sender: FDA-Public Use
  Company Number: US-002147023-NVSC2023US016004

PATIENT
  Sex: Female
  Weight: 35 kg

DRUGS (1)
  1. ILARIS [Suspect]
     Active Substance: CANAKINUMAB
     Indication: Pyrexia
     Dosage: 100 MG, QMO
     Route: 058
     Dates: start: 20221228

REACTIONS (1)
  - Condition aggravated [Not Recovered/Not Resolved]
